FAERS Safety Report 14604775 (Version 1)
Quarter: 2018Q1

REPORT INFORMATION
  Report Type: Spontaneous
  Country: BG (occurrence: BG)
  Receive Date: 20180306
  Receipt Date: 20180306
  Transmission Date: 20180509
  Serious: Yes (Hospitalization)
  Sender: FDA-Public Use
  Company Number: BG-BAYER-2018-037659

PATIENT
  Age: 72 Year
  Sex: Female
  Weight: 75 kg

DRUGS (5)
  1. TRIFAS [Concomitant]
     Dosage: 10 MG, IN THE MORNING
  2. ASPIRIN PROTECT 100 MG [Suspect]
     Active Substance: ASPIRIN
  3. CONCOR [Concomitant]
     Active Substance: BISOPROLOL FUMARATE
     Dosage: 10 MG, IN THE MORNING
  4. VASOPREN [Concomitant]
     Dosage: 10 MG, BID
  5. SPIRONOLACTONE. [Concomitant]
     Active Substance: SPIRONOLACTONE
     Dosage: 25 MG, UNK

REACTIONS (2)
  - Cardiac failure chronic [None]
  - Atrial fibrillation [None]

NARRATIVE: CASE EVENT DATE: 201802
